FAERS Safety Report 4320303-9 (Version None)
Quarter: 2004Q1

REPORT INFORMATION
  Report Type: 
  Country: None (occurrence: None)
  Receive Date: 20040317
  Receipt Date: 20040304
  Transmission Date: 20041129
  Serious: Yes (Other)
  Sender: FDA-Public Use
  Company Number: 2004015695

PATIENT
  Age: 79 Year
  Sex: Female

DRUGS (2)
  1. ZOLOFT [Suspect]
     Indication: DEPRESSION
     Dosage: 50 MG
     Dates: start: 20040218
  2. ALDACTAZINE (SPIRONOLACTONE, ALTIZIDE) [Concomitant]

REACTIONS (2)
  - ABNORMAL BEHAVIOUR [None]
  - HYPONATRAEMIA [None]
